FAERS Safety Report 8909250 (Version 2)
Quarter: 2013Q1

REPORT INFORMATION
  Report Type: Spontaneous
  Country: None (occurrence: None)
  Receive Date: 20121107
  Receipt Date: 20130109
  Transmission Date: 20140127
  Serious: Yes (Hospitalization)
  Sender: FDA-Public Use
  Company Number: 2012SP003450

PATIENT
  Age: 71 Year
  Sex: Female
  Weight: 57.5 kg

DRUGS (8)
  1. OXALIPLATIN [Suspect]
     Indication: COLORECTAL CANCER METASTATIC
     Dates: start: 20120525
  2. FLUOROURACIL [Suspect]
     Indication: COLORECTAL CANCER METASTATIC
     Dates: start: 20120525, end: 20120930
  3. FOLINIC ACID [Suspect]
     Indication: COLORECTAL CANCER METASTATIC
  4. INSULIN [Concomitant]
  5. CITALOPRAM HYDROBROMIDE [Concomitant]
  6. GLIMEPIRIDE [Concomitant]
  7. METOPROLOL [Concomitant]
  8. IRINOTECAN [Concomitant]

REACTIONS (12)
  - Dehydration [None]
  - Ascites [None]
  - Pleural effusion [None]
  - Atelectasis [None]
  - Hyponatraemia [None]
  - Hyperbilirubinaemia [None]
  - Oedema peripheral [None]
  - Pyrexia [None]
  - Pulmonary oedema [None]
  - No therapeutic response [None]
  - Colorectal cancer metastatic [None]
  - Malignant neoplasm progression [None]
